FAERS Safety Report 8824966 (Version 2)
Quarter: 2012Q4

REPORT INFORMATION
  Report Type: 
  Country: US (occurrence: US)
  Receive Date: 20121004
  Receipt Date: 20121220
  Transmission Date: 20130627
  Serious: No
  Sender: FDA-Public Use
  Company Number: US-PFIZER INC-2012244058

PATIENT
  Age: 59 Year
  Sex: Female
  Weight: 113 kg

DRUGS (2)
  1. LYRICA [Suspect]
     Indication: FIBROMYALGIA
     Dosage: 250 mg, daily
     Route: 048
     Dates: end: 200908
  2. LYRICA [Suspect]
     Dosage: 250 mg, 2x/day
     Route: 048
     Dates: start: 200908, end: 2011

REACTIONS (5)
  - Drug withdrawal syndrome [Recovered/Resolved]
  - Headache [Recovered/Resolved]
  - Tremor [Recovered/Resolved]
  - Nausea [Recovered/Resolved]
  - Abdominal discomfort [Recovered/Resolved]
